FAERS Safety Report 21009179 (Version 17)
Quarter: 2022Q4

REPORT INFORMATION
  Report Type: Report from Study
  Country: PH (occurrence: None)
  Receive Date: 20220627
  Receipt Date: 20221003
  Transmission Date: 20230113
  Serious: Yes (Death, Life-Threatening, Hospitalization)
  Sender: FDA-Public Use
  Company Number: PH-Eisai Medical Research-EC-2022-117821

PATIENT
  Age: 59 Year
  Sex: Male
  Weight: 66.5 kg

DRUGS (16)
  1. LENVATINIB [Suspect]
     Active Substance: LENVATINIB
     Indication: Clear cell renal cell carcinoma
     Route: 048
     Dates: start: 20220216, end: 20220626
  2. LENVATINIB [Suspect]
     Active Substance: LENVATINIB
     Route: 048
     Dates: start: 20220629, end: 20220705
  3. QUAVONLIMAB [Suspect]
     Active Substance: QUAVONLIMAB
     Indication: Clear cell renal cell carcinoma
     Dosage: MK-1308 25 MG + MK-3475 400 MG
     Route: 041
     Dates: start: 20220216, end: 20220511
  4. PEMBROLIZUMAB [Suspect]
     Active Substance: PEMBROLIZUMAB
     Dosage: MK-1308 25 MG + MK-3475 400 MG
     Route: 041
     Dates: start: 20220629, end: 20220629
  5. AMINO ACIDS, SOURCE UNSPECIFIED [Concomitant]
     Active Substance: AMINO ACIDS, SOURCE UNSPECIFIED
     Dates: start: 20210822, end: 20220705
  6. SODIUM BICARBONATE [Concomitant]
     Active Substance: SODIUM BICARBONATE
     Dates: start: 20210822, end: 20220705
  7. MECOBALAMIN;PREGABALIN [Concomitant]
     Dates: start: 20211021, end: 20220705
  8. OXYCODONE HYDROCHLORIDE [Concomitant]
     Active Substance: OXYCODONE HYDROCHLORIDE
     Dates: start: 20211112, end: 20220705
  9. TAMSULOSIN HYDROCHLORIDE [Concomitant]
     Active Substance: TAMSULOSIN HYDROCHLORIDE
     Dates: start: 20220302, end: 20220705
  10. AMLODIPINE [Concomitant]
     Active Substance: AMLODIPINE BESYLATE
     Dates: start: 20220313, end: 20220705
  11. OXYCODONE [Concomitant]
     Active Substance: OXYCODONE
     Dates: start: 20220324, end: 20220705
  12. MOMETASONE FUROATE [Concomitant]
     Active Substance: MOMETASONE FUROATE
     Dates: start: 20220423, end: 20220629
  13. BILASTINE [Concomitant]
     Active Substance: BILASTINE
     Dates: start: 20220223, end: 20220705
  14. NEBIVOLOL [Concomitant]
     Active Substance: NEBIVOLOL
     Dates: start: 20210822, end: 20220705
  15. LACTULOSE [Concomitant]
     Active Substance: LACTULOSE
     Dates: start: 20211020, end: 20220705
  16. XGEVA [Concomitant]
     Active Substance: DENOSUMAB
     Dates: start: 20211020, end: 20220616

REACTIONS (2)
  - Hyponatraemia [Recovering/Resolving]
  - Malignant neoplasm progression [Fatal]

NARRATIVE: CASE EVENT DATE: 20220621
